FAERS Safety Report 5629510-6 (Version None)
Quarter: 2008Q1

REPORT INFORMATION
  Report Type: 
  Country: None (occurrence: None)
  Receive Date: 20080218
  Receipt Date: 20080205
  Transmission Date: 20080703
  Serious: Yes (Death, Hospitalization, Other)
  Sender: FDA-Public Use
  Company Number: GB-BAYER-200813164GPV

PATIENT
  Age: 62 Year
  Sex: Female

DRUGS (6)
  1. REFLUDAN [Suspect]
     Indication: HEPARIN-INDUCED THROMBOCYTOPENIA
     Dosage: TOTAL DAILY DOSE: 108 MG
     Route: 042
  2. REFLUDAN [Suspect]
     Route: 040
  3. LOW WEIGHT HEPARIN [Concomitant]
     Indication: PULMONARY EMBOLISM
     Route: 065
  4. DIURETICS [Concomitant]
     Indication: PULMONARY EMBOLISM
     Route: 065
  5. FRESH FROZEN PLASMA [Concomitant]
     Indication: HAEMORRHAGE
     Route: 042
  6. BLOOD TRANSFUSION [Concomitant]
     Indication: HAEMORRHAGE
     Route: 042

REACTIONS (3)
  - COMA [None]
  - HAEMORRHAGE [None]
  - RESPIRATORY FAILURE [None]
